FAERS Safety Report 12569049 (Version 1)
Quarter: 2016Q3

REPORT INFORMATION
  Report Type: Spontaneous
  Country: US (occurrence: US)
  Receive Date: 20160719
  Receipt Date: 20160719
  Transmission Date: 20161109
  Serious: No
  Sender: FDA-Public Use
  Company Number: US-BAYER-2016-140387

PATIENT
  Sex: Female

DRUGS (1)
  1. ALEVE [Suspect]
     Active Substance: NAPROXEN SODIUM
     Indication: TOOTHACHE
     Dosage: 4-5 DF
     Dates: start: 20160717, end: 20160717

REACTIONS (2)
  - Product use issue [None]
  - Lethargy [None]

NARRATIVE: CASE EVENT DATE: 20160717
